FAERS Safety Report 6905080-7 (Version None)
Quarter: 2010Q3

REPORT INFORMATION
  Report Type: 
  Country: None (occurrence: None)
  Receive Date: 20100804
  Receipt Date: 20090915
  Transmission Date: 20110219
  Serious: Yes (Other)
  Sender: FDA-Public Use
  Company Number: US-PFIZER INC-2009219714

PATIENT

DRUGS (1)
  1. LYRICA [Suspect]
     Dosage: 150 MG, 4X/DAY

REACTIONS (3)
  - HAEMATOMA [None]
  - IRON DEFICIENCY [None]
  - SYNCOPE [None]
